FAERS Safety Report 6968843-8 (Version None)
Quarter: 2010Q3

REPORT INFORMATION
  Report Type: 
  Country: None (occurrence: None)
  Receive Date: 20100902
  Receipt Date: 20100624
  Transmission Date: 20110219
  Serious: Yes (Disabling)
  Sender: FDA-Public Use
  Company Number: APP200900483

PATIENT
  Age: 51 Year
  Sex: Female

DRUGS (9)
  1. SENSORCAINE [Suspect]
     Indication: MUSCULOSKELETAL PAIN
     Dosage: 270 ML, INTRA-ARTICULAR, 270 ML, INTRA-ARTICULAR 30 ML, LOCAL INFILTRATION
     Route: 014
     Dates: start: 20050707
  2. SENSORCAINE [Suspect]
     Indication: MUSCULOSKELETAL PAIN
     Dosage: 270 ML, INTRA-ARTICULAR, 270 ML, INTRA-ARTICULAR 30 ML, LOCAL INFILTRATION
     Route: 014
     Dates: start: 20060417
  3. SENSORCAINE [Suspect]
     Indication: MUSCULOSKELETAL PAIN
     Dosage: 270 ML, INTRA-ARTICULAR, 270 ML, INTRA-ARTICULAR 30 ML, LOCAL INFILTRATION
     Route: 014
     Dates: start: 20060417
  4. BUPIVACAINE HYDROCHLORIDE AND EPINEPHRINE [Suspect]
     Indication: MUSCULOSKELETAL PAIN
     Dosage: 30 ML, INSUFFLATION
     Dates: start: 20050707
  5. NAROPIN [Suspect]
     Indication: NERVE BLOCK
     Dates: start: 20050707
  6. XYLOCAINE [Suspect]
     Indication: MUSCULOSKELETAL PAIN
     Dosage: 20 ML, LOCAL INFILTRATION
     Dates: start: 20060417
  7. I-FLOW ON-Q PAINBUSTER PAIN PUMP [Suspect]
     Indication: MUSCULOSKELETAL PAIN
     Dates: start: 20050707
  8. PEPCID [Concomitant]
  9. ANCEF [Concomitant]

REACTIONS (5)
  - DISCOMFORT [None]
  - JOINT INJURY [None]
  - JOINT RANGE OF MOTION DECREASED [None]
  - MUSCULOSKELETAL PAIN [None]
  - ROTATOR CUFF SYNDROME [None]
